FAERS Safety Report 6913520-2 (Version None)
Quarter: 2010Q3

REPORT INFORMATION
  Report Type: 
  Country: None (occurrence: None)
  Receive Date: 20100803
  Receipt Date: 20100722
  Transmission Date: 20110219
  Serious: Yes (Other)
  Sender: FDA-Public Use
  Company Number: GB-1182766

PATIENT
  Age: 80 Year
  Sex: Female

DRUGS (4)
  1. TRAVATAN [Suspect]
     Indication: GLAUCOMA
     Dosage: OPHTHALMIC
     Route: 047
  2. PREDNISOLONE [Concomitant]
  3. CHLORAMPHENICOL [Concomitant]
  4. XALATAN [Concomitant]

REACTIONS (3)
  - EYE DISORDER [None]
  - VISUAL ACUITY REDUCED [None]
  - VISUAL FIELD DEFECT [None]
